FAERS Safety Report 10427122 (Version 1)
Quarter: 2014Q3

REPORT INFORMATION
  Report Type: Spontaneous
  Country: AU (occurrence: AU)
  Receive Date: 20140903
  Receipt Date: 20140903
  Transmission Date: 20150326
  Serious: Yes (Hospitalization)
  Sender: FDA-Public Use
  Company Number: AU-ASTRAZENECA-2014SE64457

PATIENT
  Age: 25171 Day
  Sex: Female

DRUGS (10)
  1. PARACETAMOL [Concomitant]
     Active Substance: ACETAMINOPHEN
  2. PROPOFOL. [Suspect]
     Active Substance: PROPOFOL
     Route: 042
     Dates: start: 20140416, end: 20140416
  3. CEFTRIAXONE. [Concomitant]
     Active Substance: CEFTRIAXONE
  4. MIDAZOLAM [Concomitant]
     Active Substance: MIDAZOLAM\MIDAZOLAM HYDROCHLORIDE
     Route: 042
  5. ROCURONIUM BROMIDE. [Concomitant]
     Active Substance: ROCURONIUM BROMIDE
  6. FENTANYL. [Suspect]
     Active Substance: FENTANYL
     Route: 065
     Dates: start: 20140416, end: 20140418
  7. ATRACURIUM BESYLATE. [Concomitant]
     Active Substance: ATRACURIUM BESYLATE
  8. GLYCOPYRROLATE. [Concomitant]
     Active Substance: GLYCOPYRROLATE
  9. NEO-SYNEPHRINE [Concomitant]
     Active Substance: PHENYLEPHRINE HYDROCHLORIDE
  10. METRONIDAZOLE. [Concomitant]
     Active Substance: METRONIDAZOLE

REACTIONS (3)
  - Convulsion [Recovered/Resolved]
  - Movement disorder [Unknown]
  - Catatonia [Unknown]

NARRATIVE: CASE EVENT DATE: 20140416
